FAERS Safety Report 9620970 (Version 7)
Quarter: 2013Q4

REPORT INFORMATION
  Report Type: Spontaneous
  Country: US (occurrence: US)
  Receive Date: 20131015
  Receipt Date: 20131220
  Transmission Date: 20140711
  Serious: No
  Sender: FDA-Public Use
  Company Number: US-VERTEX PHARMACEUTICALS INC-2013-010368

PATIENT
  Age: 60 Year
  Sex: Male
  Weight: 91 kg

DRUGS (8)
  1. INCIVEK [Suspect]
     Indication: HEPATITIS C
     Dosage: 750 MG, TID
     Route: 048
     Dates: start: 20130925, end: 20131217
  2. COPEGUS [Suspect]
     Indication: HEPATITIS C
     Dosage: 600 MG, BID
     Route: 048
     Dates: start: 20130925
  3. PEGASYS [Suspect]
     Indication: HEPATITIS C
     Dosage: 1 INJECTION, QW
     Dates: start: 20130925
  4. EUCERIN [Concomitant]
     Indication: PRURITUS
     Route: 061
  5. PANTOPRAZOLE [Concomitant]
     Indication: DYSPEPSIA
     Route: 048
  6. GRAPE SEED EXTRACT [Concomitant]
     Indication: HAEMORRHOIDS
     Dosage: 2 TABLESPOONS
  7. ZOLOFT [Concomitant]
     Indication: AFFECTIVE DISORDER
     Dosage: 50 MG, QD
  8. ZOLOFT [Concomitant]
     Indication: ANTIDEPRESSANT THERAPY

REACTIONS (17)
  - Palpitations [Not Recovered/Not Resolved]
  - Increased upper airway secretion [Not Recovered/Not Resolved]
  - Lethargy [Not Recovered/Not Resolved]
  - Emotional disorder [Recovered/Resolved]
  - Negativism [Not Recovered/Not Resolved]
  - Agitation [Recovered/Resolved]
  - Anxiety [Not Recovered/Not Resolved]
  - Gastrooesophageal reflux disease [Recovered/Resolved]
  - Dyspepsia [Recovered/Resolved]
  - Injection site swelling [Not Recovered/Not Resolved]
  - Fatigue [Not Recovered/Not Resolved]
  - Proctalgia [Not Recovered/Not Resolved]
  - Haemorrhoids [Not Recovered/Not Resolved]
  - Anorectal discomfort [Not Recovered/Not Resolved]
  - Pruritus [Not Recovered/Not Resolved]
  - Diarrhoea [Not Recovered/Not Resolved]
  - Rash [Recovered/Resolved]
